FAERS Safety Report 25744727 (Version 2)
Quarter: 2025Q3

REPORT INFORMATION
  Report Type: Spontaneous
  Country: EU (occurrence: EU)
  Receive Date: 20250901
  Receipt Date: 20250919
  Transmission Date: 20251021
  Serious: Yes (Other)
  Sender: SANDOZ
  Company Number: None

PATIENT
  Age: 75 Year
  Sex: Female
  Weight: 53 kg

DRUGS (1)
  1. HYRIMOZ [Suspect]
     Active Substance: ADALIMUMAB-ADAZ
     Indication: Rheumatoid arthritis
     Route: 058
     Dates: start: 20240807, end: 20241218

REACTIONS (9)
  - Sudden hearing loss [Recovered/Resolved]
  - Hypoacusis [Unknown]
  - Hidradenitis [Recovering/Resolving]
  - Body temperature increased [Unknown]
  - Somnolence [Unknown]
  - Dizziness [Unknown]
  - Pustular psoriasis [Recovering/Resolving]
  - Nausea [Unknown]
  - Vomiting [Unknown]

NARRATIVE: CASE EVENT DATE: 20241224
